FAERS Safety Report 5886283-X (Version None)
Quarter: 2008Q3

REPORT INFORMATION
  Report Type: 
  Country: None (occurrence: None)
  Receive Date: 20080917
  Receipt Date: 20080908
  Transmission Date: 20090109
  Serious: Yes (Hospitalization, Other)
  Sender: FDA-Public Use
  Company Number: A0725657A

PATIENT
  Age: 65 Year
  Sex: Female
  Weight: 108.6 kg

DRUGS (10)
  1. AVANDIA [Suspect]
  2. AVANDAMET [Suspect]
     Dosage: 2TAB TWICE PER DAY
  3. NAPROXEN [Concomitant]
  4. XENICAL [Concomitant]
  5. BENAZEPRIL HYDROCHLORIDE [Concomitant]
  6. LEXAPRO [Concomitant]
  7. METFORMIN [Concomitant]
  8. LANTUS [Concomitant]
     Dates: start: 20050501, end: 20050501
  9. AMARYL [Concomitant]
     Dates: start: 20050401, end: 20050401
  10. ULTRAM [Concomitant]
     Dates: start: 20060501

REACTIONS (7)
  - ACTIVITIES OF DAILY LIVING IMPAIRED [None]
  - ACUTE CORONARY SYNDROME [None]
  - CORONARY ARTERY DISEASE [None]
  - HEART INJURY [None]
  - MYOCARDIAL INFARCTION [None]
  - PRINZMETAL ANGINA [None]
  - STRESS CARDIOMYOPATHY [None]
